FAERS Safety Report 14876487 (Version 5)
Quarter: 2020Q3

REPORT INFORMATION
  Report Type: Spontaneous
  Country: US (occurrence: US)
  Receive Date: 20180510
  Receipt Date: 20200730
  Transmission Date: 20201102
  Serious: No
  Sender: FDA-Public Use
  Company Number: US-STRONGBRIDGE BIOPHARMA-2018-STR-000132

PATIENT
  Age: 48 Year
  Sex: Female

DRUGS (3)
  1. KEVEYIS [Suspect]
     Active Substance: DICHLORPHENAMIDE
     Dosage: 1 DF, AT NIGHT
     Route: 048
  2. KEVEYIS [Suspect]
     Active Substance: DICHLORPHENAMIDE
     Dosage: 1 DF, BID
     Route: 048
     Dates: start: 20180427
  3. KEVEYIS [Suspect]
     Active Substance: DICHLORPHENAMIDE
     Indication: MYOTONIA
     Dosage: 50 MG, QD
     Route: 048
     Dates: end: 2020

REACTIONS (9)
  - Fatigue [Recovering/Resolving]
  - Inappropriate schedule of product administration [Recovered/Resolved]
  - Migraine [Unknown]
  - Intentional product use issue [Unknown]
  - Somnolence [Recovering/Resolving]
  - Paraesthesia [Recovering/Resolving]
  - Paraesthesia [Unknown]
  - Paraesthesia [Recovered/Resolved]
  - Fatigue [Unknown]

NARRATIVE: CASE EVENT DATE: 20180331
